FAERS Safety Report 6113337-5 (Version None)
Quarter: 2009Q1

REPORT INFORMATION
  Report Type: 
  Country: None (occurrence: None)
  Receive Date: 20090312
  Receipt Date: 20000526
  Transmission Date: 20090719
  Serious: No
  Sender: FDA-Public Use
  Company Number: US-ABBOTT-08P-163-0456598-00

PATIENT
  Sex: Female

DRUGS (3)
  1. DEPAKOTE [Suspect]
     Indication: DEPRESSION
     Dates: start: 20000126, end: 20000426
  2. BUPROPION [Concomitant]
     Indication: DEPRESSION
  3. VENLAFAXINE HCL [Concomitant]
     Indication: DEPRESSION

REACTIONS (1)
  - ALOPECIA [None]
